FAERS Safety Report 9721323 (Version 1)
Quarter: 2013Q4

REPORT INFORMATION
  Report Type: Spontaneous
  Country: US (occurrence: US)
  Receive Date: 20131129
  Receipt Date: 20131129
  Transmission Date: 20140711
  Serious: No
  Sender: FDA-Public Use
  Company Number: US-PFIZER INC-2013338386

PATIENT
  Age: 26 Year
  Sex: Male
  Weight: 64.4 kg

DRUGS (1)
  1. VIAGRA [Suspect]
     Indication: ERECTILE DYSFUNCTION
     Dosage: 100 MG, AS NEEDED

REACTIONS (5)
  - Flushing [Not Recovered/Not Resolved]
  - Headache [Not Recovered/Not Resolved]
  - Penile pain [Not Recovered/Not Resolved]
  - Penis disorder [Not Recovered/Not Resolved]
  - Penis disorder [Not Recovered/Not Resolved]
